FAERS Safety Report 25415904 (Version 2)
Quarter: 2025Q3

REPORT INFORMATION
  Report Type: Spontaneous
  Country: US (occurrence: US)
  Receive Date: 20250610
  Receipt Date: 20250707
  Transmission Date: 20251020
  Serious: No
  Sender: ABBVIE
  Company Number: US-ABBVIE-6315677

PATIENT
  Sex: Male

DRUGS (1)
  1. RISANKIZUMAB [Suspect]
     Active Substance: RISANKIZUMAB
     Indication: Colitis ulcerative
     Route: 058

REACTIONS (6)
  - Injection site mass [Unknown]
  - Injection site urticaria [Unknown]
  - Injection site erythema [Unknown]
  - Rubber sensitivity [Unknown]
  - Dermatitis contact [Unknown]
  - Rash [Unknown]
